FAERS Safety Report 10832102 (Version 1)
Quarter: 2015Q1

REPORT INFORMATION
  Report Type: Spontaneous
  Country: US (occurrence: US)
  Receive Date: 20150219
  Receipt Date: 20150219
  Transmission Date: 20150721
  Serious: Yes (Life-Threatening, Hospitalization, Other)
  Sender: FDA-Public Use
  Company Number: US-GLAXOSMITHKLINE-US2015GSK021385

PATIENT
  Age: 73 Year
  Sex: Male
  Weight: 81.63 kg

DRUGS (9)
  1. VITAMIN C [Concomitant]
     Active Substance: ASCORBIC ACID
  2. CALCIUM WITH VITAMIN D [Concomitant]
     Active Substance: CALCIUM\VITAMIN D
  3. VOTRIENT [Suspect]
     Active Substance: PAZOPANIB HYDROCHLORIDE
     Indication: METASTASES TO LIVER
     Dosage: 800 MG, QD
     Route: 048
     Dates: start: 20150208
  4. CRESTOR [Concomitant]
     Active Substance: ROSUVASTATIN CALCIUM
  5. VITAMIN D [Concomitant]
     Active Substance: CHOLECALCIFEROL
  6. ZOLOFT [Concomitant]
     Active Substance: SERTRALINE HYDROCHLORIDE
  7. AMBIEN [Concomitant]
     Active Substance: ZOLPIDEM TARTRATE
  8. VOTRIENT [Suspect]
     Active Substance: PAZOPANIB HYDROCHLORIDE
     Indication: THYROID CANCER
     Dosage: 800 MG, QD
     Route: 048
     Dates: end: 20150205
  9. LEVOTHYROXINE [Concomitant]
     Active Substance: LEVOTHYROXINE

REACTIONS (4)
  - Blindness [Unknown]
  - Cerebrovascular accident [Recovered/Resolved]
  - Visual field defect [Unknown]
  - Disease progression [Unknown]

NARRATIVE: CASE EVENT DATE: 20150205
